FAERS Safety Report 9107562 (Version 1)
Quarter: 2013Q1

REPORT INFORMATION
  Report Type: Spontaneous
  Country: FR (occurrence: FR)
  Receive Date: 20130221
  Receipt Date: 20130221
  Transmission Date: 20140127
  Serious: Yes (Hospitalization)
  Sender: FDA-Public Use
  Company Number: PHHY2013FR016943

PATIENT
  Age: 72 Year
  Sex: Male

DRUGS (11)
  1. AMOXICILLIN+CLAVULANATE SANDOZ [Suspect]
     Dosage: 3 DF, IN 1 DAY
     Dates: start: 20100128, end: 20100201
  2. EXELON PATCH [Suspect]
     Dosage: 4.6 MG, PER 24 HOURS
     Route: 062
     Dates: start: 200910, end: 20100203
  3. EXELON [Concomitant]
     Dosage: 1.5 MG, UNK
     Route: 048
     Dates: start: 200810, end: 200910
  4. EXELON ORAL [Concomitant]
     Dates: start: 20100203
  5. AUGMENTIN [Concomitant]
     Dosage: 1 G, TID
     Route: 042
     Dates: start: 20100201
  6. CACIT D3 [Concomitant]
  7. EBIXA [Concomitant]
     Dosage: 10 U
  8. FORLAX [Concomitant]
  9. INIPOMP [Concomitant]
     Dosage: 20 U
  10. AMLOR [Concomitant]
     Dosage: 5 U
  11. NORSET [Concomitant]

REACTIONS (6)
  - Drug reaction with eosinophilia and systemic symptoms [Recovered/Resolved with Sequelae]
  - Toxic skin eruption [Recovered/Resolved with Sequelae]
  - Pyrexia [Recovered/Resolved]
  - Eosinophilia [Unknown]
  - Leukocytosis [Unknown]
  - Rash maculo-papular [Unknown]
